FAERS Safety Report 7404544-X (Version None)
Quarter: 2011Q2

REPORT INFORMATION
  Report Type: 
  Country: None (occurrence: None)
  Receive Date: 20110411
  Receipt Date: 20110328
  Transmission Date: 20111010
  Serious: Yes (Other)
  Sender: FDA-Public Use
  Company Number: US-MYLANLABS-2011S1006581

PATIENT
  Age: 60 Year
  Sex: Male

DRUGS (9)
  1. SULFASALAZINE [Interacting]
     Indication: INFLAMMATORY BOWEL DISEASE
     Dosage: INCREASED TO 500MG FOUR TIMES DAILY AFTER 7 DAYS.
     Route: 065
  2. ALBUTEROL SULFATE AUTOHALER [Concomitant]
     Route: 055
  3. SULFASALAZINE [Interacting]
     Dosage: INCREASED FROM 500MG TWICE DAILY AFTER 7 DAYS.
     Route: 065
  4. WARFARIN SODIUM [Interacting]
     Dosage: INCREASED FROM 40 MG/WEEK 3 DAYS AFTER SULFASALAZINE INITIATION
  5. PHENYTOIN [Concomitant]
     Route: 065
  6. PROCET                             /01554201/ [Concomitant]
     Route: 065
  7. OMEPRAZOLE [Concomitant]
     Route: 065
  8. LISINOPRIL [Concomitant]
     Route: 065
  9. WARFARIN SODIUM [Suspect]
     Indication: ANTICOAGULANT THERAPY
     Dosage: INCREASED TO 42.5 MG/WEEK 3 DAYS AFTER SULFASALAZINE INITIATION
     Route: 065

REACTIONS (3)
  - CONTUSION [None]
  - DRUG INTERACTION [None]
  - INTERNATIONAL NORMALISED RATIO INCREASED [None]
